FAERS Safety Report 25340625 (Version 1)
Quarter: 2025Q2

REPORT INFORMATION
  Report Type: Spontaneous
  Country: CA (occurrence: CA)
  Receive Date: 20250521
  Receipt Date: 20250521
  Transmission Date: 20250717
  Serious: Yes (Other)
  Sender: ROCHE
  Company Number: CA-ROCHE-10000286165

PATIENT
  Age: 60 Year
  Sex: Female

DRUGS (2)
  1. OCREVUS [Suspect]
     Active Substance: OCRELIZUMAB
     Indication: Multiple sclerosis
     Route: 042
     Dates: start: 20230307
  2. CELEBREX [Concomitant]
     Active Substance: CELECOXIB
     Route: 048

REACTIONS (4)
  - Seizure [Not Recovered/Not Resolved]
  - Arthralgia [Unknown]
  - Joint swelling [Unknown]
  - Vertigo [Unknown]

NARRATIVE: CASE EVENT DATE: 20241125
